FAERS Safety Report 8384303-4 (Version None)
Quarter: 2012Q2

REPORT INFORMATION
  Report Type: 
  Country: None (occurrence: None)
  Receive Date: 20120524
  Receipt Date: 20120518
  Transmission Date: 20120825
  Serious: Yes (Hospitalization)
  Sender: FDA-Public Use
  Company Number: US-B.I. PHARMACEUTICALS,INC./RIDGEFIELD-2012-BP-09603BP

PATIENT
  Sex: Female
  Weight: 89.81 kg

DRUGS (16)
  1. PRADAXA [Suspect]
     Indication: ATRIAL FIBRILLATION
     Dosage: 300 MG
     Route: 048
     Dates: start: 20120201, end: 20120416
  2. ALTACE [Concomitant]
     Dosage: 5 MG
     Route: 048
  3. CALCIUM WITH VITAMIN D [Concomitant]
     Route: 048
  4. PERCOCET [Concomitant]
  5. PROZAC [Concomitant]
     Route: 048
  6. FOSAMAX [Concomitant]
     Dosage: 70 MG
     Route: 048
  7. AMOXICILLIN [Concomitant]
     Dosage: 750 MG
     Route: 048
  8. COLACE [Concomitant]
     Dosage: 100 MG
     Route: 048
  9. IRON [Concomitant]
     Route: 048
  10. ZANAFLEX [Concomitant]
     Dosage: 4 MG
     Route: 048
  11. AMBIEN [Concomitant]
     Dosage: 10 MG
     Route: 048
  12. AMIODARONE HCL [Concomitant]
     Dosage: 200 MG
     Route: 048
  13. ATIVAN [Concomitant]
     Dosage: 1.5 MG
  14. LASIX [Concomitant]
     Dosage: 40 MG
     Route: 048
  15. MIRALAX [Concomitant]
     Indication: CONSTIPATION
  16. SYNTHROID [Concomitant]
     Dosage: 200 MCG
     Route: 048

REACTIONS (3)
  - RENAL FAILURE ACUTE [None]
  - HAEMATOCHEZIA [None]
  - ANAEMIA [None]
